FAERS Safety Report 8423763-7 (Version None)
Quarter: 2012Q2

REPORT INFORMATION
  Report Type: 
  Country: None (occurrence: None)
  Receive Date: 20120608
  Receipt Date: 20111207
  Transmission Date: 20120825
  Serious: No
  Sender: FDA-Public Use
  Company Number: US-ASTRAZENECA-2011SE70030

PATIENT
  Age: 64 Year
  Sex: Male

DRUGS (3)
  1. METOPROLOL [Concomitant]
  2. CRESTOR [Concomitant]
  3. ATACAND [Suspect]
     Route: 048

REACTIONS (4)
  - HEART RATE INCREASED [None]
  - ARTERIOSCLEROSIS [None]
  - BLOOD PRESSURE INCREASED [None]
  - DRUG DOSE OMISSION [None]
